FAERS Safety Report 4910485-X (Version None)
Quarter: 2006Q1

REPORT INFORMATION
  Report Type: 
  Country: None (occurrence: None)
  Receive Date: 20060209
  Receipt Date: 20060123
  Transmission Date: 20060701
  Serious: Yes (Hospitalization)
  Sender: FDA-Public Use
  Company Number: GBS050918490

PATIENT
  Age: 83 Year
  Sex: Female

DRUGS (11)
  1. FORTEO [Suspect]
     Indication: OSTEOPOROSIS
     Dosage: 20 UG, DAILY (1/D)
     Dates: start: 20050701
  2. ACETAMINOPHEN [Concomitant]
  3. AMOXICILLIN [Concomitant]
  4. ERYTHROMYCIN (ERYTHROMICIN) [Concomitant]
  5. AMLODIPINE [Concomitant]
  6. LANSOPRAZOLE [Concomitant]
  7. LEVOTHYROXINE SODIUM [Concomitant]
  8. BECLOMETHASONE AQUEOUS (BECLOMETHASONE DIPROPIONATE) [Concomitant]
  9. FOSAMAX [Concomitant]
  10. DIAZEPAM [Suspect]
  11. GAVISCON [Concomitant]

REACTIONS (10)
  - ALVEOLITIS FIBROSING [None]
  - BLOOD CALCIUM DECREASED [None]
  - C-REACTIVE PROTEIN INCREASED [None]
  - CONSTIPATION [None]
  - HEADACHE [None]
  - HYPERTHYROIDISM [None]
  - LOWER RESPIRATORY TRACT INFECTION [None]
  - MALAISE [None]
  - OSTEOPOROSIS [None]
  - PERNICIOUS ANAEMIA [None]
